FAERS Safety Report 25084363 (Version 2)
Quarter: 2025Q2

REPORT INFORMATION
  Report Type: Spontaneous
  Country: GB (occurrence: GB)
  Receive Date: 20250317
  Receipt Date: 20250401
  Transmission Date: 20250717
  Serious: Yes (Other)
  Sender: GILEAD
  Company Number: GB-GILEAD-2025-0707455

PATIENT
  Age: 44 Year
  Sex: Female

DRUGS (1)
  1. ATRIPLA [Suspect]
     Active Substance: EFAVIRENZ\EMTRICITABINE\TENOFOVIR DISOPROXIL FUMARATE
     Indication: HIV infection
     Route: 065

REACTIONS (10)
  - Metabolic surgery [Unknown]
  - Cytomegalovirus viraemia [Unknown]
  - Abnormal loss of weight [Unknown]
  - Malabsorption [Unknown]
  - Sarcopenia [Unknown]
  - Diarrhoea [Not Recovered/Not Resolved]
  - Hypoalbuminaemia [Unknown]
  - Drug ineffective [Unknown]
  - CD4 lymphocytes abnormal [Unknown]
  - Drug resistance [Unknown]
